FAERS Safety Report 19243624 (Version 2)
Quarter: 2021Q2

REPORT INFORMATION
  Report Type: Spontaneous
  Country: US (occurrence: US)
  Receive Date: 20210511
  Receipt Date: 20210514
  Transmission Date: 20210717
  Serious: Yes (Other)
  Sender: FDA-Public Use
  Company Number: US-ELI_LILLY_AND_COMPANY-US202105001284

PATIENT
  Sex: Female

DRUGS (1)
  1. FORTEO [Suspect]
     Active Substance: TERIPARATIDE
     Indication: PRODUCT USED FOR UNKNOWN INDICATION
     Dosage: UNK UNK, UNKNOWN
     Route: 065
     Dates: start: 20210501

REACTIONS (6)
  - Vitreous floaters [Unknown]
  - Photopsia [Unknown]
  - Frustration tolerance decreased [Unknown]
  - Vitreous detachment [Unknown]
  - Thyroid disorder [Unknown]
  - Anxiety [Unknown]
